FAERS Safety Report 11366150 (Version 4)
Quarter: 2015Q4

REPORT INFORMATION
  Report Type: Report from Study
  Country: US (occurrence: US)
  Receive Date: 20150811
  Receipt Date: 20151103
  Transmission Date: 20160304
  Serious: Yes (Hospitalization, Disabling)
  Sender: FDA-Public Use
  Company Number: US-ACTELION-A-US2015-122233

PATIENT
  Age: 9 Month
  Sex: Male

DRUGS (29)
  1. VECURONIUM [Concomitant]
     Active Substance: VECURONIUM BROMIDE
     Route: 041
  2. ARGININE [Concomitant]
     Active Substance: ARGININE
     Dosage: 1.3GM/13ML, QID
     Route: 049
  3. ACETAMINOPHEN. [Concomitant]
     Active Substance: ACETAMINOPHEN
     Dosage: 100MG/3.12ML, PRN
     Route: 049
  4. NITRIC OXIDE. [Concomitant]
     Active Substance: NITRIC OXIDE
  5. TRACLEER [Suspect]
     Active Substance: BOSENTAN
     Indication: PULMONARY HYPERTENSION
     Dosage: 4 MG, BID
     Route: 049
     Dates: start: 20150512
  6. IPRATROPIUM [Concomitant]
     Active Substance: IPRATROPIUM
     Dosage: 126 MCG/0.63ML, BID
     Route: 055
  7. LIDOCAINE. [Concomitant]
     Active Substance: LIDOCAINE
     Route: 061
  8. ZOSYN [Concomitant]
     Active Substance: PIPERACILLIN SODIUM\TAZOBACTAM SODIUM
     Dosage: 720 MG/7.2ML, 14.4ML/HR, Q6HRS
     Route: 042
  9. XOPENEX [Concomitant]
     Active Substance: LEVALBUTEROL HYDROCHLORIDE
     Dosage: 0.63MG/3ML, Q4HRS
     Route: 055
  10. PULMICORT TURBUHALER [Concomitant]
     Active Substance: BUDESONIDE
     Dosage: 0.5MG/2ML, BID
     Route: 055
  11. MORPHINE [Concomitant]
     Active Substance: MORPHINE
     Dosage: UNK, PRN
     Route: 049
  12. CAPTOPRIL. [Concomitant]
     Active Substance: CAPTOPRIL
     Dosage: 3 MG/3ML, QID
     Route: 049
  13. FENTANYL. [Concomitant]
     Active Substance: FENTANYL
     Route: 041
  14. FUROSEMIDE. [Concomitant]
     Active Substance: FUROSEMIDE
     Dosage: 7.2 MG, Q6HRS
     Route: 042
  15. CLONIDINE. [Concomitant]
     Active Substance: CLONIDINE
     Dosage: 0.04 MG/0.4 ML, Q6HRS
     Route: 049
  16. NICARDIPINE [Concomitant]
     Active Substance: NICARDIPINE
     Dosage: UNK
     Route: 041
     Dates: start: 20150820
  17. SOLU-CORTEF [Concomitant]
     Active Substance: HYDROCORTISONE SODIUM SUCCINATE
     Dosage: 3.5 MG/0.35 ML, QID
     Route: 042
  18. VERSED [Concomitant]
     Active Substance: MIDAZOLAM HYDROCHLORIDE
     Dosage: 2MG/2ML, PRN
     Route: 042
  19. SPIRONOLACTONE W/HYDROCHLOROTHIAZIDE [Concomitant]
     Active Substance: HYDROCHLOROTHIAZIDE\SPIRONOLACTONE
     Dosage: 5MG-5MG/ML, 1.2 ML, BID
     Route: 049
  20. SILDENAFIL. [Concomitant]
     Active Substance: SILDENAFIL
     Dosage: 10 MG, QID
     Route: 049
  21. DEXMEDETOMIDINE. [Concomitant]
     Active Substance: DEXMEDETOMIDINE
     Dosage: UNK
     Route: 041
  22. FAMOTIDINE. [Concomitant]
     Active Substance: FAMOTIDINE
     Dosage: 2.4MG, Q12HRS
     Route: 049
  23. METHADONE [Concomitant]
     Active Substance: METHADONE HYDROCHLORIDE
     Dosage: 5MG/5ML, QID
     Route: 049
  24. OXYGEN. [Concomitant]
     Active Substance: OXYGEN
     Dosage: 1.5 L/MIN, UNK
     Route: 055
  25. MIDAZOLAM [Concomitant]
     Active Substance: MIDAZOLAM\MIDAZOLAM HYDROCHLORIDE
     Dosage: UNK
     Route: 041
  26. NOREPINEPHRINE [Concomitant]
     Active Substance: NOREPINEPHRINE\NOREPINEPHRINE BITARTRATE
     Route: 041
  27. PREVACID [Concomitant]
     Active Substance: LANSOPRAZOLE
     Dosage: 7.5MG/2.5ML, BID
     Route: 049
  28. MILRINONE [Concomitant]
     Active Substance: MILRINONE
     Route: 041
  29. POLYSPORIN [Concomitant]
     Active Substance: BACITRACIN ZINC\POLYMYXIN B SULFATE
     Dosage: ONCE, PRN
     Route: 061

REACTIONS (10)
  - Bacteraemia [Recovering/Resolving]
  - Sepsis [Unknown]
  - Tracheitis [Recovering/Resolving]
  - Hypertension [Unknown]
  - Acute respiratory failure [Unknown]
  - Bronchopulmonary dysplasia [Unknown]
  - Tracheostomy [Unknown]
  - Tachycardia [Unknown]
  - Lung disorder [Recovering/Resolving]
  - Pulmonary hypertension [Unknown]

NARRATIVE: CASE EVENT DATE: 20150727
